FAERS Safety Report 10512204 (Version 1)
Quarter: 2014Q4

REPORT INFORMATION
  Report Type: Report from Study
  Country: US (occurrence: US)
  Receive Date: 20141010
  Receipt Date: 20141010
  Transmission Date: 20150528
  Serious: Yes (Other)
  Sender: FDA-Public Use
  Company Number: US-TEVA-513792USA

PATIENT
  Age: 65 Year
  Sex: Female
  Weight: 54.93 kg

DRUGS (14)
  1. AMOXICILLIN. [Concomitant]
     Active Substance: AMOXICILLIN
     Indication: SINUSITIS
     Dosage: 4500 MILLIGRAM DAILY;
     Route: 048
     Dates: start: 20130510, end: 20130513
  2. RIBAVIRIN. [Suspect]
     Active Substance: RIBAVIRIN
     Indication: HEPATITIS C
     Route: 048
     Dates: start: 20130418, end: 20130418
  3. BLACK COHOSH [Concomitant]
     Active Substance: BLACK COHOSH
     Indication: NUTRITIONAL SUPPLEMENTATION
     Dosage: 540 MILLIGRAM DAILY;
     Route: 048
     Dates: start: 1997, end: 20130103
  4. ABT 333 [Suspect]
     Active Substance: DASABUVIR
     Indication: HEPATITIS C
     Route: 048
     Dates: start: 20130418
  5. TYLENOL WITH CODEINE [Concomitant]
     Active Substance: ACETAMINOPHEN\CODEINE PHOSPHATE
     Indication: TOOTH ABSCESS
     Route: 048
     Dates: start: 20130305, end: 20130309
  6. FOLIC ACID. [Concomitant]
     Active Substance: FOLIC ACID
     Indication: NUTRITIONAL SUPPLEMENTATION
     Dosage: 800 MILLIGRAM DAILY;
     Route: 048
     Dates: start: 201407
  7. RITONAVIR. [Suspect]
     Active Substance: RITONAVIR
     Indication: HEPATITIS C
     Route: 048
     Dates: start: 20130418, end: 20130709
  8. RITONAVIR. [Suspect]
     Active Substance: RITONAVIR
     Dates: start: 20130418
  9. AMOXICILLIN. [Concomitant]
     Active Substance: AMOXICILLIN
     Indication: TOOTH ABSCESS
     Dosage: 8000 MILLIGRAM DAILY;
     Route: 048
     Dates: start: 20130305, end: 20130311
  10. CALCIUM [Concomitant]
     Active Substance: CALCIUM
     Dosage: 2400 MILLIGRAM DAILY;
     Dates: start: 201407
  11. DESOXIMETASONE. [Concomitant]
     Active Substance: DESOXIMETASONE
     Indication: DERMATITIS ALLERGIC
     Route: 061
     Dates: start: 20130515, end: 20130519
  12. VITAMIN C [Concomitant]
     Active Substance: ASCORBIC ACID
     Indication: NUTRITIONAL SUPPLEMENTATION
     Dosage: 1000 MILLIGRAM DAILY;
     Route: 048
     Dates: start: 1970
  13. BLACK COHOSH [Concomitant]
     Active Substance: BLACK COHOSH
     Dosage: 540 MILLIGRAM DAILY;
     Route: 048
     Dates: start: 20130722
  14. VITAMIN D [Concomitant]
     Active Substance: CHOLECALCIFEROL
     Indication: NUTRITIONAL SUPPLEMENTATION
     Dosage: 400 IU (INTERNATIONAL UNIT) DAILY;
     Route: 048
     Dates: start: 201407

REACTIONS (1)
  - Lung adenocarcinoma metastatic [Unknown]

NARRATIVE: CASE EVENT DATE: 20140422
